FAERS Safety Report 5913346-2 (Version None)
Quarter: 2008Q4

REPORT INFORMATION
  Report Type: 
  Country: None (occurrence: None)
  Receive Date: 20081009
  Receipt Date: 20081001
  Transmission Date: 20090506
  Serious: Yes (Other)
  Sender: FDA-Public Use
  Company Number: PHEH2008US08730

PATIENT
  Age: 97 Year
  Sex: Female

DRUGS (1)
  1. EXELON [Suspect]
     Dosage: UNK
     Route: 062
     Dates: start: 20080924, end: 20080927

REACTIONS (4)
  - CONFUSIONAL STATE [None]
  - EYE DISORDER [None]
  - INSOMNIA [None]
  - PARANOIA [None]
